FAERS Safety Report 9718955 (Version 1)
Quarter: 2013Q4

REPORT INFORMATION
  Report Type: Spontaneous
  Country: FR (occurrence: FR)
  Receive Date: 20131127
  Receipt Date: 20131127
  Transmission Date: 20140711
  Serious: Yes (Hospitalization)
  Sender: FDA-Public Use
  Company Number: FR-ABBVIE-13P-056-1172698-00

PATIENT
  Age: 48 Year
  Sex: Female

DRUGS (3)
  1. HUMIRA [Suspect]
     Indication: RHEUMATOID ARTHRITIS
     Route: 058
     Dates: start: 201206, end: 201301
  2. TOCILIZUMAB [Suspect]
     Indication: RHEUMATOID ARTHRITIS
  3. ABATACEPT [Suspect]
     Indication: RHEUMATOID ARTHRITIS
     Dates: start: 201306

REACTIONS (3)
  - Cervical dysplasia [Not Recovered/Not Resolved]
  - Papilloma viral infection [Not Recovered/Not Resolved]
  - Drug ineffective [Unknown]
